FAERS Safety Report 24052400 (Version 4)
Quarter: 2024Q3

REPORT INFORMATION
  Report Type: Spontaneous
  Country: JP (occurrence: JP)
  Receive Date: 20240704
  Receipt Date: 20240720
  Transmission Date: 20241017
  Serious: Yes (Hospitalization, Other)
  Sender: JOHNSON AND JOHNSON
  Company Number: JP-JNJFOC-20240678408

PATIENT
  Age: 68 Year
  Sex: Female

DRUGS (11)
  1. OPSUMIT [Suspect]
     Active Substance: MACITENTAN
     Indication: Pulmonary arterial hypertension
     Route: 048
  2. TRACLEER [Suspect]
     Active Substance: BOSENTAN
     Indication: Pulmonary arterial hypertension
     Route: 048
  3. TRACLEER [Suspect]
     Active Substance: BOSENTAN
     Route: 048
  4. TRACLEER [Suspect]
     Active Substance: BOSENTAN
     Route: 048
  5. TRACLEER [Suspect]
     Active Substance: BOSENTAN
     Route: 048
  6. TRACLEER [Suspect]
     Active Substance: BOSENTAN
     Route: 048
  7. SELEXIPAG [Suspect]
     Active Substance: SELEXIPAG
     Indication: Pulmonary arterial hypertension
     Dosage: DOSE UNKNOWN
     Route: 048
  8. SELEXIPAG [Suspect]
     Active Substance: SELEXIPAG
     Dosage: DOSE UNKNOWNGRADUALLY INCREASED
     Route: 048
  9. SELEXIPAG [Suspect]
     Active Substance: SELEXIPAG
     Route: 048
  10. SELEXIPAG [Suspect]
     Active Substance: SELEXIPAG
     Route: 048
  11. NITRIC OXIDE [Concomitant]
     Active Substance: NITRIC OXIDE
     Dosage: DOSE UNKNOWN
     Route: 055

REACTIONS (3)
  - Coronary artery stenosis [Recovering/Resolving]
  - Pulmonary arterial hypertension [Unknown]
  - Ortner^s syndrome [Recovering/Resolving]
